FAERS Safety Report 10886109 (Version 1)
Quarter: 2015Q1

REPORT INFORMATION
  Report Type: Spontaneous
  Country: US (occurrence: US)
  Receive Date: 20150304
  Receipt Date: 20150304
  Transmission Date: 20150721
  Serious: Yes (Hospitalization, Other)
  Sender: FDA-Public Use
  Company Number: US-ABBVIE-15P-163-1355235-00

PATIENT

DRUGS (1)
  1. ANDROGEL [Suspect]
     Active Substance: TESTOSTERONE
     Indication: BLOOD TESTOSTERONE DECREASED
     Route: 061
     Dates: start: 2012, end: 2013

REACTIONS (12)
  - Cerebrovascular accident [Unknown]
  - Anxiety [Unknown]
  - Anhedonia [Unknown]
  - Lung disorder [Unknown]
  - Fear [Unknown]
  - Economic problem [Unknown]
  - Loss of employment [Unknown]
  - Social problem [Unknown]
  - Transient ischaemic attack [Unknown]
  - Impaired work ability [Unknown]
  - Cardiac disorder [Unknown]
  - Pain [Unknown]

NARRATIVE: CASE EVENT DATE: 2013
